FAERS Safety Report 8491096 (Version 2)
Quarter: 2013Q1

REPORT INFORMATION
  Report Type: Not Available
  Country: FR (occurrence: FR)
  Receive Date: 20120403
  Receipt Date: 20130304
  Transmission Date: 20140127
  Serious: Yes (Other)
  Sender: FDA-Public Use
  Company Number: FR-ASTELLAS-2012EU002001

PATIENT
  Age: 60 Year
  Sex: Female

DRUGS (2)
  1. ADVAGRAF [Suspect]
     Dosage: UNK
     Route: 048
  2. PROGRAF [Suspect]
     Dosage: UNK
     Route: 048

REACTIONS (3)
  - Medication error [Unknown]
  - Transplant rejection [Unknown]
  - Dyspepsia [Unknown]
